FAERS Safety Report 7772758-5 (Version None)
Quarter: 2011Q3

REPORT INFORMATION
  Report Type: 
  Country: None (occurrence: None)
  Receive Date: 20110922
  Receipt Date: 20101025
  Transmission Date: 20111222
  Serious: No
  Sender: FDA-Public Use
  Company Number: US-ASTRAZENECA-2010SE50409

PATIENT
  Sex: Female

DRUGS (4)
  1. SEROQUEL XR [Suspect]
     Indication: BIPOLAR DISORDER
     Route: 048
     Dates: start: 20101011, end: 20101013
  2. SEROQUEL XR [Suspect]
     Route: 048
     Dates: start: 20101021
  3. KLONOPIN [Concomitant]
     Indication: ANXIETY
  4. SEROQUEL XR [Suspect]
     Route: 048
     Dates: start: 20101014, end: 20101020

REACTIONS (4)
  - ANXIETY [None]
  - HEART RATE INCREASED [None]
  - PARAESTHESIA [None]
  - DRUG DOSE OMISSION [None]
